FAERS Safety Report 18068442 (Version 1)
Quarter: 2020Q3

REPORT INFORMATION
  Report Type: Other
  Country: CA (occurrence: CA)
  Receive Date: 20200724
  Receipt Date: 20200724
  Transmission Date: 20201103
  Serious: Yes (Other)
  Sender: FDA-Public Use
  Company Number: CA-APOTEX-2020AP013976

PATIENT
  Age: 54 Year
  Sex: Female

DRUGS (3)
  1. SALBUTAMOL [Suspect]
     Active Substance: ALBUTEROL
     Indication: PRODUCT USED FOR UNKNOWN INDICATION
     Dosage: UNK
     Route: 065
  2. MEPOLIZUMAB [Suspect]
     Active Substance: MEPOLIZUMAB
     Indication: ASTHMA
     Dosage: 100 MILLIGRAM
     Route: 042
  3. ADVAIR HFA [Suspect]
     Active Substance: FLUTICASONE PROPIONATE\SALMETEROL XINAFOATE
     Indication: PRODUCT USED FOR UNKNOWN INDICATION
     Dosage: UNK
     Route: 065

REACTIONS (35)
  - Cervical spinal stenosis [Unknown]
  - Epicondylitis [Unknown]
  - Hepatomegaly [Unknown]
  - Hyperphagia [Unknown]
  - Nephrolithiasis [Unknown]
  - Skin lesion [Unknown]
  - Sinus disorder [Unknown]
  - White matter lesion [Unknown]
  - Arthropathy [Unknown]
  - Asthma [Unknown]
  - Bone disorder [Unknown]
  - Intervertebral disc protrusion [Unknown]
  - Naevus lipomatosus cutaneous superficialis [Unknown]
  - Neuropathy peripheral [Unknown]
  - Asthenia [Unknown]
  - Hepatic steatosis [Unknown]
  - Burning sensation [Unknown]
  - Exostosis [Unknown]
  - Nasal congestion [Unknown]
  - Rotator cuff syndrome [Unknown]
  - Abdominal pain upper [Unknown]
  - Intervertebral disc degeneration [Unknown]
  - Parosmia [Unknown]
  - Melanocytic naevus [Unknown]
  - Mucosal hypertrophy [Unknown]
  - Muscular weakness [Unknown]
  - Osteoarthritis [Unknown]
  - Diverticulum intestinal [Unknown]
  - Nasal oedema [Unknown]
  - Nasopharyngitis [Unknown]
  - Pain in extremity [Unknown]
  - Aortic arteriosclerosis [Unknown]
  - Dysgeusia [Unknown]
  - Foramen magnum stenosis [Unknown]
  - Musculoskeletal disorder [Unknown]
